FAERS Safety Report 24793500 (Version 1)
Quarter: 2024Q4

REPORT INFORMATION
  Report Type: Spontaneous
  Country: US (occurrence: US)
  Receive Date: 20241231
  Receipt Date: 20241231
  Transmission Date: 20250114
  Serious: No
  Sender: BAYER HEALTHCARE LLC
  Company Number: US-BAYER-2024A184035

PATIENT
  Age: 74 Year
  Sex: Female

DRUGS (1)
  1. MIRALAX [Suspect]
     Active Substance: POLYETHYLENE GLYCOL 3350
     Indication: Gastrointestinal disorder
     Dosage: 1 CAPFUL AND ANOTHER CAP UNTIL THE WHITE SECTION OF THE CAP OF MIRALAX POWDER MIXED WITH LESS THAN 8
     Route: 048
     Dates: start: 2020

REACTIONS (3)
  - Incorrect product administration duration [Recovered/Resolved]
  - Incorrect dose administered [Recovered/Resolved]
  - Product taste abnormal [None]

NARRATIVE: CASE EVENT DATE: 20200101
